FAERS Safety Report 10351271 (Version 2)
Quarter: 2014Q3

REPORT INFORMATION
  Report Type: Spontaneous
  Country: US (occurrence: US)
  Receive Date: 20140730
  Receipt Date: 20140919
  Transmission Date: 20150326
  Serious: Yes (Other)
  Sender: FDA-Public Use
  Company Number: US-GLAXOSMITHKLINE-A1082510A

PATIENT
  Age: 63 Year
  Sex: Male
  Weight: 88.6 kg

DRUGS (8)
  1. ATIVAN [Concomitant]
     Active Substance: LORAZEPAM
  2. VIAGRA [Concomitant]
     Active Substance: SILDENAFIL CITRATE
  3. LEVOTHYROXINE [Concomitant]
     Active Substance: LEVOTHYROXINE
  4. GEMFIBROZIL. [Concomitant]
     Active Substance: GEMFIBROZIL
  5. ADVAIR HFA [Suspect]
     Active Substance: FLUTICASONE PROPIONATE\SALMETEROL XINAFOATE
     Indication: EMPHYSEMA
     Dosage: 1PUFF TWICE PER DAY
     Route: 055
     Dates: start: 2011
  6. LOVASTATIN. [Concomitant]
     Active Substance: LOVASTATIN
  7. PROAIR HFA [Concomitant]
     Active Substance: ALBUTEROL SULFATE
  8. SYNTHROID [Concomitant]
     Active Substance: LEVOTHYROXINE SODIUM

REACTIONS (10)
  - Erectile dysfunction [Unknown]
  - Pollakiuria [Recovering/Resolving]
  - Radiotherapy [Unknown]
  - Micturition urgency [Recovering/Resolving]
  - Diverticulum [Unknown]
  - Prostate cancer [Unknown]
  - Dysuria [Recovering/Resolving]
  - Large intestine polyp [Unknown]
  - Functional gastrointestinal disorder [Recovering/Resolving]
  - Hepatic cyst [Unknown]

NARRATIVE: CASE EVENT DATE: 2014
